FAERS Safety Report 19076865 (Version 1)
Quarter: 2021Q1

REPORT INFORMATION
  Report Type: Spontaneous
  Country: CA (occurrence: CA)
  Receive Date: 20210331
  Receipt Date: 20210331
  Transmission Date: 20210420
  Serious: Yes (Other)
  Sender: FDA-Public Use
  Company Number: CA-UNICHEM PHARMACEUTICALS (USA) INC-UCM202103-000276

PATIENT
  Age: 42 Year
  Sex: Male

DRUGS (2)
  1. BUPROPION. [Suspect]
     Active Substance: BUPROPION
     Indication: GOUT
     Dosage: UNKNOWN
  2. ALLOPURINOL. [Suspect]
     Active Substance: ALLOPURINOL
     Indication: GOUT
     Dosage: UNKNOWN

REACTIONS (2)
  - Drug interaction [Unknown]
  - Dermatitis exfoliative [Recovered/Resolved]
